FAERS Safety Report 12603191 (Version 1)
Quarter: 2016Q3

REPORT INFORMATION
  Report Type: Spontaneous
  Country: FR (occurrence: FR)
  Receive Date: 20160728
  Receipt Date: 20160728
  Transmission Date: 20161109
  Serious: Yes (Life-Threatening, Hospitalization, Other)
  Sender: FDA-Public Use
  Company Number: FR-ELI_LILLY_AND_COMPANY-FR201607010456

PATIENT
  Age: 51 Year
  Sex: Female

DRUGS (2)
  1. ALIMTA [Suspect]
     Active Substance: PEMETREXED DISODIUM
     Indication: BRONCHIAL CARCINOMA
     Dosage: 875 MG, SINGLE
     Route: 042
     Dates: start: 20160426
  2. CISPLATINE MYLAN [Suspect]
     Active Substance: CISPLATIN
     Indication: BRONCHIAL CARCINOMA
     Dosage: 130 MG, SINGLE
     Route: 042
     Dates: start: 20160426

REACTIONS (4)
  - Coronary artery occlusion [Unknown]
  - Left ventricular dysfunction [Not Recovered/Not Resolved]
  - Ischaemic cardiomyopathy [Unknown]
  - Myocardial infarction [Not Recovered/Not Resolved]

NARRATIVE: CASE EVENT DATE: 20160501
